FAERS Safety Report 4822711-6 (Version None)
Quarter: 2005Q4

REPORT INFORMATION
  Report Type: 
  Country: None (occurrence: None)
  Receive Date: 20051108
  Receipt Date: 20051004
  Transmission Date: 20060501
  Serious: Yes (Disabling)
  Sender: FDA-Public Use
  Company Number: GBWYE029104OCT05

PATIENT
  Sex: Male
  Weight: 85.8 kg

DRUGS (1)
  1. ENBREL [Suspect]
     Indication: RHEUMATOID ARTHRITIS
     Route: 058
     Dates: start: 20030516

REACTIONS (2)
  - POLYMYALGIA [None]
  - RED BLOOD CELL SEDIMENTATION RATE INCREASED [None]
